FAERS Safety Report 10173941 (Version 2)
Quarter: 2014Q4

REPORT INFORMATION
  Report Type: Spontaneous
  Country: US (occurrence: US)
  Receive Date: 20140515
  Receipt Date: 20141015
  Transmission Date: 20150528
  Serious: Yes (Hospitalization)
  Sender: FDA-Public Use
  Company Number: US-BAYER-2014-071570

PATIENT
  Age: 23 Year
  Sex: Female
  Weight: 90.7 kg

DRUGS (2)
  1. SYNTHROID [Concomitant]
     Active Substance: LEVOTHYROXINE SODIUM
     Indication: HYPOTHYROIDISM
     Dosage: UNK
     Dates: start: 2005
  2. MIRENA [Suspect]
     Active Substance: LEVONORGESTREL
     Indication: CONTRACEPTION
     Dosage: 20 MCG/24HR, CONT
     Route: 015
     Dates: start: 20110712, end: 20120418

REACTIONS (7)
  - Device dislocation [None]
  - Post procedural discomfort [None]
  - Injury [None]
  - Uterine perforation [None]
  - Medical device pain [None]
  - Procedural pain [None]
  - Medical device discomfort [None]

NARRATIVE: CASE EVENT DATE: 201204
